FAERS Safety Report 16395738 (Version 4)
Quarter: 2020Q4

REPORT INFORMATION
  Report Type: Report from Study
  Country: DE (occurrence: GR)
  Receive Date: 20190605
  Receipt Date: 20201209
  Transmission Date: 20210113
  Serious: Yes (Disabling)
  Sender: FDA-Public Use
  Company Number: GR-ELI_LILLY_AND_COMPANY-GR201906000328

PATIENT
  Age: 55 Year
  Sex: Male
  Weight: 68 kg

DRUGS (7)
  1. FLUORACILO [Suspect]
     Active Substance: FLUOROURACIL
     Dosage: 1060 MG, EVERY TWO WEEKS
     Route: 042
     Dates: start: 20180608
  2. CETUXIMAB. [Suspect]
     Active Substance: CETUXIMAB
     Indication: COLORECTAL CANCER METASTATIC
     Dosage: 400 MG/M2, UNKNOWN
     Route: 042
     Dates: start: 20180706
  3. CETUXIMAB. [Suspect]
     Active Substance: CETUXIMAB
     Dosage: 500 MG/M2, ONCE IN TWO WEEKS
     Route: 042
     Dates: start: 20190116
  4. CETUXIMAB. [Suspect]
     Active Substance: CETUXIMAB
     Dosage: 500 MG/M2, ONCE IN TWO WEEKS
     Route: 042
     Dates: start: 20181129
  5. FLUORACILO [Suspect]
     Active Substance: FLUOROURACIL
     Indication: COLORECTAL CANCER METASTATIC
     Dosage: 700 MG, EVERY TWO WEEKS
     Route: 040
     Dates: start: 20180608
  6. LEUCOVORIN [FOLINIC ACID] [Concomitant]
     Active Substance: LEUCOVORIN
     Indication: COLORECTAL CANCER METASTATIC
     Dosage: 350 MG, EVERY TWO WEEKS
     Route: 042
     Dates: start: 20180608
  7. IRINOTECAN [Concomitant]
     Active Substance: IRINOTECAN
     Indication: COLORECTAL CANCER METASTATIC
     Dosage: 320 MG, EVERY TWO WEEKS
     Route: 042
     Dates: start: 20180608

REACTIONS (2)
  - Off label use [Unknown]
  - Skin toxicity [Recovered/Resolved]

NARRATIVE: CASE EVENT DATE: 20181213
